FAERS Safety Report 11172121 (Version 1)
Quarter: 2015Q2

REPORT INFORMATION
  Report Type: Spontaneous
  Country: DE (occurrence: DE)
  Receive Date: 20150608
  Receipt Date: 20150608
  Transmission Date: 20150821
  Serious: Yes (Hospitalization, Other)
  Sender: FDA-Public Use
  Company Number: DE-RECKITT BENCKISER PHARMACEUTICAL, INC-RB-079980-2015

PATIENT
  Sex: Male

DRUGS (1)
  1. BUPRENORPHINE [Suspect]
     Active Substance: BUPRENORPHINE
     Indication: PRODUCT USED FOR UNKNOWN INDICATION
     Dosage: 8 MG, DAILY
     Route: 065

REACTIONS (3)
  - Hallucination [Unknown]
  - Psychotic disorder [Unknown]
  - Drug detoxification [Unknown]
